FAERS Safety Report 21128927 (Version 1)
Quarter: 2022Q3

REPORT INFORMATION
  Report Type: Spontaneous
  Country: None (occurrence: ES)
  Receive Date: 20220725
  Receipt Date: 20220725
  Transmission Date: 20221026
  Serious: Yes (Hospitalization)
  Sender: FDA-Public Use
  Company Number: ES-B.Braun Medical Inc.-2131215

PATIENT
  Age: 60 Year
  Sex: Male

DRUGS (6)
  1. ACETAMINOPHEN [Suspect]
     Active Substance: ACETAMINOPHEN
  2. PREGABALIN [Suspect]
     Active Substance: PREGABALIN
  3. METAMIZOL [Suspect]
     Active Substance: METAMIZOLE SODIUM
  4. TRAMADOL [Suspect]
     Active Substance: TRAMADOL
  5. IBUPROFEN [Suspect]
     Active Substance: IBUPROFEN
  6. MORPHINE HYDROCHLORIDE [Concomitant]
     Active Substance: MORPHINE HYDROCHLORIDE

REACTIONS (1)
  - Hyperhidrosis [Recovered/Resolved]
